FAERS Safety Report 5875556-2 (Version None)
Quarter: 2008Q3

REPORT INFORMATION
  Report Type: 
  Country: None (occurrence: None)
  Receive Date: 20080909
  Receipt Date: 20080903
  Transmission Date: 20090109
  Serious: Yes (Hospitalization)
  Sender: FDA-Public Use
  Company Number: US-AMGEN-QUU305642

PATIENT
  Sex: Female

DRUGS (3)
  1. ENBREL [Suspect]
     Indication: RHEUMATOID ARTHRITIS
     Route: 058
     Dates: start: 20071101
  2. METHOTREXATE [Concomitant]
     Route: 048
  3. PLAQUENIL [Concomitant]
     Route: 048

REACTIONS (4)
  - DEVICE FAILURE [None]
  - KNEE DEFORMITY [None]
  - PROCEDURAL PAIN [None]
  - RHEUMATOID ARTHRITIS [None]
